FAERS Safety Report 25488170 (Version 1)
Quarter: 2025Q2

REPORT INFORMATION
  Report Type: Report from Study
  Country: BR (occurrence: BR)
  Receive Date: 20250627
  Receipt Date: 20250627
  Transmission Date: 20250717
  Serious: Yes (Hospitalization, Other)
  Sender: BAYER HEALTHCARE PHARMACEUTICALS INC.
  Company Number: BR-BAYER-2025A038032

PATIENT
  Age: 64 Year
  Sex: Female

DRUGS (14)
  1. STIVARGA [Suspect]
     Active Substance: REGORAFENIB MONOHYDRATE
     Indication: Colorectal cancer
     Dosage: 80 MG, QD
     Dates: start: 20250312, end: 2025
  2. STIVARGA [Suspect]
     Active Substance: REGORAFENIB MONOHYDRATE
     Indication: Colorectal cancer
     Dates: start: 2025, end: 2025
  3. STIVARGA [Suspect]
     Active Substance: REGORAFENIB MONOHYDRATE
     Indication: Colorectal cancer
     Dates: start: 2025, end: 2025
  4. METFORMIN [Concomitant]
     Active Substance: METFORMIN HYDROCHLORIDE
     Indication: Diabetes mellitus
  5. SIMVASTATIN [Concomitant]
     Active Substance: SIMVASTATIN
     Indication: Blood cholesterol abnormal
  6. Losartan potassico [Concomitant]
     Indication: Hypertension
  7. Acepril [Concomitant]
     Indication: Hypertension
     Dosage: 5 MG, QD (AT NIGHT)
  8. VITAMIN D [Concomitant]
     Active Substance: VITAMIN D NOS
  9. VITAMIN C [Concomitant]
     Active Substance: ASCORBIC ACID
  10. LOPERAMIDE [Concomitant]
     Active Substance: LOPERAMIDE
     Dates: start: 202503, end: 2025
  11. LOPERAMIDE [Concomitant]
     Active Substance: LOPERAMIDE
     Dosage: 3 TABLETS A DAY
     Dates: start: 2025
  12. HOMEOPATHICS [Concomitant]
     Active Substance: HOMEOPATHICS
     Indication: Constipation
  13. METAMUCIL [Concomitant]
     Active Substance: PLANTAGO SEED
     Dates: start: 20250601
  14. DIGITALIS [Concomitant]
     Active Substance: DIGITALIS

REACTIONS (15)
  - Haematochezia [Not Recovered/Not Resolved]
  - Anal fissure [None]
  - Rectal abscess [None]
  - Anal fistula [None]
  - Skin discolouration [Not Recovered/Not Resolved]
  - Pain in extremity [Recovering/Resolving]
  - Blister [Not Recovered/Not Resolved]
  - Skin exfoliation [Not Recovered/Not Resolved]
  - Erythema [Not Recovered/Not Resolved]
  - Aphthous ulcer [Not Recovered/Not Resolved]
  - Oral pain [Not Recovered/Not Resolved]
  - Decreased appetite [Not Recovered/Not Resolved]
  - Weight decreased [Not Recovered/Not Resolved]
  - Diarrhoea [Not Recovered/Not Resolved]
  - Incorrect dose administered [Not Recovered/Not Resolved]

NARRATIVE: CASE EVENT DATE: 20250301
